FAERS Safety Report 7443729-3 (Version None)
Quarter: 2011Q2

REPORT INFORMATION
  Report Type: 
  Country: None (occurrence: None)
  Receive Date: 20110428
  Receipt Date: 20110421
  Transmission Date: 20111010
  Serious: Yes (Hospitalization, Other)
  Sender: FDA-Public Use
  Company Number: US-AMGEN-USASP2011021202

PATIENT
  Age: 16 Year
  Sex: Female

DRUGS (1)
  1. ENBREL [Suspect]
     Indication: ARTHRITIS
     Dosage: 50 MG, QWK
     Dates: start: 20100101, end: 20101223

REACTIONS (8)
  - CARDIOMEGALY [None]
  - DYSPNOEA [None]
  - NAUSEA [None]
  - LUPUS-LIKE SYNDROME [None]
  - INFLUENZA LIKE ILLNESS [None]
  - PLEURAL EFFUSION [None]
  - CHEST PAIN [None]
  - VOMITING [None]
